FAERS Safety Report 5814400-6 (Version None)
Quarter: 2008Q3

REPORT INFORMATION
  Report Type: 
  Country: None (occurrence: None)
  Receive Date: 20080715
  Receipt Date: 20080630
  Transmission Date: 20090109
  Serious: Yes (Other)
  Sender: FDA-Public Use
  Company Number: 2008S1011506

PATIENT
  Sex: Male

DRUGS (6)
  1. OMEPRAZOLE [Suspect]
     Indication: DRUG USE FOR UNKNOWN INDICATION
     Dosage: 10 MG;DAILY;ORAL
     Route: 048
  2. SULFASALAZINE [Suspect]
     Indication: DRUG USE FOR UNKNOWN INDICATION
     Dosage: 1.5 MG; TWICE A DAY; ORAL
     Route: 048
     Dates: start: 20010801, end: 20071001
  3. DICLOFENAC SODIUM [Suspect]
     Indication: DRUG USE FOR UNKNOWN INDICATION
     Dosage: 50 MG; ORAL
     Route: 048
     Dates: start: 20051001
  4. FOLIC ACID [Suspect]
     Indication: DRUG USE FOR UNKNOWN INDICATION
     Dosage: 5 MG; DAILY; ORAL
     Route: 048
     Dates: start: 20061013, end: 20080501
  5. METHOTREXATE [Suspect]
     Indication: DRUG USE FOR UNKNOWN INDICATION
     Dosage: 15 MG; ORAL
     Route: 048
     Dates: start: 20061013, end: 20080501
  6. ENBREL [Suspect]
     Indication: DRUG USE FOR UNKNOWN INDICATION
     Dosage: 50 MG;  SUBCUTANEOUS
     Route: 058
     Dates: start: 20070425, end: 20080501

REACTIONS (1)
  - TONSIL CANCER [None]
